FAERS Safety Report 13960399 (Version 1)
Quarter: 2017Q3

REPORT INFORMATION
  Report Type: Spontaneous
  Country: US (occurrence: None)
  Receive Date: 20170912
  Receipt Date: 20170912
  Transmission Date: 20171128
  Serious: Yes (Hospitalization)
  Sender: FDA-Public Use
  Company Number: None

PATIENT
  Age: 59 Year
  Sex: Female

DRUGS (19)
  1. SYNTHROID [Concomitant]
     Active Substance: LEVOTHYROXINE SODIUM
  2. NYSTOP [Concomitant]
     Active Substance: NYSTATIN
  3. FUROSEMIDE. [Concomitant]
     Active Substance: FUROSEMIDE
  4. VESICARE [Concomitant]
     Active Substance: SOLIFENACIN SUCCINATE
  5. DULOXETINE. [Concomitant]
     Active Substance: DULOXETINE
  6. SIMVASTATIN. [Concomitant]
     Active Substance: SIMVASTATIN
  7. TOPIRAMATE. [Concomitant]
     Active Substance: TOPIRAMATE
  8. BENZONATE [Concomitant]
     Active Substance: BENZONATATE
  9. BREO ELLIPTA [Concomitant]
     Active Substance: FLUTICASONE FUROATE\VILANTEROL TRIFENATATE
  10. OXCARBAZEPIN [Concomitant]
     Active Substance: OXCARBAZEPINE
  11. ALPRAZOLAM. [Concomitant]
     Active Substance: ALPRAZOLAM
  12. HYDROCO [Concomitant]
  13. VENTOLIN [Concomitant]
     Active Substance: ALBUTEROL SULFATE
  14. ALBUTEROL. [Concomitant]
     Active Substance: ALBUTEROL
  15. CEPHALEXIN. [Concomitant]
     Active Substance: CEPHALEXIN
  16. COSENTYX [Suspect]
     Active Substance: SECUKINUMAB
     Indication: ARTHRITIS
     Route: 058
     Dates: start: 20161231
  17. LASIX [Suspect]
     Active Substance: FUROSEMIDE
  18. MONTELUKAST [Concomitant]
     Active Substance: MONTELUKAST SODIUM
  19. SINGULAIR [Concomitant]
     Active Substance: MONTELUKAST SODIUM

REACTIONS (1)
  - Hospitalisation [None]
